FAERS Safety Report 10721701 (Version 1)
Quarter: 2015Q1

REPORT INFORMATION
  Report Type: Spontaneous
  Country: IN (occurrence: IN)
  Receive Date: 20150119
  Receipt Date: 20150119
  Transmission Date: 20150721
  Serious: Yes (Other)
  Sender: FDA-Public Use
  Company Number: IN-MYLANLABS-2015M1000646

PATIENT

DRUGS (5)
  1. SODIUM CHLORIDE. [Concomitant]
     Active Substance: SODIUM CHLORIDE
     Indication: STATUS EPILEPTICUS
     Dosage: 100 ML
     Route: 041
  2. LORAZEPAM. [Concomitant]
     Active Substance: LORAZEPAM
     Indication: STATUS EPILEPTICUS
     Dosage: 4MG
     Route: 042
  3. DEXAMETHASONE. [Concomitant]
     Active Substance: DEXAMETHASONE
     Indication: MENINGITIS TUBERCULOUS
     Route: 042
  4. PHENYTOIN. [Suspect]
     Active Substance: PHENYTOIN
     Indication: STATUS EPILEPTICUS
     Dosage: 1000 MG OVER 50 MINUTES AT 20 MG/MIN
     Route: 041
  5. PHENYTOIN. [Suspect]
     Active Substance: PHENYTOIN
     Dosage: 300 MG, QD
     Route: 048

REACTIONS (1)
  - Purple glove syndrome [Recovering/Resolving]
